FAERS Safety Report 9283023 (Version 1)
Quarter: 2013Q2

REPORT INFORMATION
  Report Type: Report from Study
  Country: FR (occurrence: FR)
  Receive Date: 20130510
  Receipt Date: 20130510
  Transmission Date: 20140414
  Serious: Yes (Hospitalization)
  Sender: FDA-Public Use
  Company Number: FR-JNJFOC-20130416300

PATIENT
  Age: 48 Year
  Sex: Male
  Weight: 61 kg

DRUGS (5)
  1. TMC114 [Suspect]
     Indication: HIV INFECTION
     Route: 048
     Dates: start: 20101104, end: 20130321
  2. RITONAVIR [Suspect]
     Indication: HIV INFECTION
     Route: 048
     Dates: start: 20101104, end: 20130321
  3. RALTEGRAVIR [Suspect]
     Indication: HIV INFECTION
     Route: 048
     Dates: start: 20101104, end: 20130321
  4. IMODIUM [Concomitant]
     Indication: DIARRHOEA
     Route: 065
     Dates: start: 20110616, end: 20130328
  5. ZELITREX [Concomitant]
     Indication: ANTIVIRAL PROPHYLAXIS
     Route: 065
     Dates: start: 201301

REACTIONS (1)
  - Amoebic dysentery [Recovered/Resolved]
